FAERS Safety Report 9078766 (Version 1)
Quarter: 2013Q1

REPORT INFORMATION
  Report Type: Report from Study
  Country: US (occurrence: US)
  Receive Date: 20130130
  Receipt Date: 20130130
  Transmission Date: 20140127
  Serious: Yes (Hospitalization, Other)
  Sender: FDA-Public Use
  Company Number: US-ABBOTT-12P-163-0971748-00

PATIENT
  Age: 62 Year
  Sex: Female

DRUGS (20)
  1. HUMIRA 40 MG/0.8 ML PEN [Suspect]
     Indication: PSORIATIC ARTHROPATHY
     Dates: start: 201010, end: 20120801
  2. PROPRANOLOL [Concomitant]
     Indication: BLOOD PRESSURE ABNORMAL
     Dosage: 2 IN 1 DAY, IN AM AND AFTERNOON
  3. LIPITOR [Concomitant]
     Indication: BLOOD CHOLESTEROL ABNORMAL
     Dosage: DAILY, AT HOUR OF SLEEP
  4. CYMBALTA [Concomitant]
     Indication: NEUROPATHY PERIPHERAL
     Dosage: DAILY, IN AM
  5. NOVOLOG [Concomitant]
     Indication: BLOOD GLUCOSE ABNORMAL
     Dosage: 2.5 U/HR 00:00-0530/3 U/HR 0530-00:00
  6. METFORMIN [Concomitant]
     Indication: BLOOD GLUCOSE ABNORMAL
  7. VITAMIN D [Concomitant]
     Indication: VITAMIN SUPPLEMENTATION
  8. LASIX [Concomitant]
     Indication: SWELLING
     Dosage: IN AM AS NEEDED
  9. POTASSIUM [Concomitant]
     Indication: MINERAL SUPPLEMENTATION
  10. HYDROCODONE [Concomitant]
     Indication: PAIN
     Dosage: 7.5/100 MG, PRN
  11. VITAMIN B COMPLEX [Concomitant]
     Indication: DIABETIC NEUROPATHY
  12. MULTIVITAMIN [Concomitant]
     Indication: VITAMIN SUPPLEMENTATION
  13. MAGNESIUM [Concomitant]
     Indication: MINERAL SUPPLEMENTATION
  14. IRON [Concomitant]
     Indication: MINERAL SUPPLEMENTATION
  15. REQUIP [Concomitant]
     Indication: RESTLESS LEGS SYNDROME
  16. CALTRATE [Concomitant]
     Indication: PRODUCT USED FOR UNKNOWN INDICATION
  17. ENABLEX [Concomitant]
     Indication: BLADDER DISORDER
  18. PANTOPRAZOLE [Concomitant]
     Indication: PROPHYLAXIS
  19. PANTOPRAZOLE [Concomitant]
     Indication: DYSPEPSIA
  20. FORTEO [Concomitant]
     Indication: OSTEOPOROSIS

REACTIONS (9)
  - Fall [Not Recovered/Not Resolved]
  - Limb injury [Not Recovered/Not Resolved]
  - Joint injury [Not Recovered/Not Resolved]
  - Coronary artery occlusion [Not Recovered/Not Resolved]
  - Myelitis transverse [Not Recovered/Not Resolved]
  - Urinary tract infection [Unknown]
  - Urinary tract infection [Unknown]
  - Urinary tract infection [Unknown]
  - Urinary tract infection [Unknown]
